FAERS Safety Report 10852916 (Version 1)
Quarter: 2015Q1

REPORT INFORMATION
  Report Type: Spontaneous
  Country: US (occurrence: US)
  Receive Date: 20150223
  Receipt Date: 20150223
  Transmission Date: 20150721
  Serious: No
  Sender: FDA-Public Use
  Company Number: US-BRISTOL-MYERS SQUIBB COMPANY-BMS-2015-010071

PATIENT
  Sex: Female

DRUGS (1)
  1. SPRYCEL [Suspect]
     Active Substance: DASATINIB
     Indication: CHRONIC MYELOID LEUKAEMIA
     Dosage: 100 MG, QD
     Route: 048
     Dates: start: 20150121

REACTIONS (7)
  - Diarrhoea [Unknown]
  - Fatigue [Unknown]
  - Vertigo [Unknown]
  - Insomnia [Unknown]
  - Adverse event [Unknown]
  - Oedema peripheral [Unknown]
  - Dysuria [Unknown]
